FAERS Safety Report 17435038 (Version 2)
Quarter: 2020Q1

REPORT INFORMATION
  Report Type: Spontaneous
  Country: US (occurrence: US)
  Receive Date: 20200219
  Receipt Date: 20200317
  Transmission Date: 20200409
  Serious: No
  Sender: FDA-Public Use
  Company Number: US-ASTRAZENECA-2020SE18129

PATIENT
  Age: 23786 Day
  Sex: Male
  Weight: 113.4 kg

DRUGS (1)
  1. BYDUREON BCISE [Suspect]
     Active Substance: EXENATIDE
     Indication: TYPE 2 DIABETES MELLITUS
     Route: 058
     Dates: start: 20191220

REACTIONS (3)
  - Injection site haemorrhage [Recovered/Resolved]
  - Device leakage [Unknown]
  - Incorrect dose administered by device [Not Recovered/Not Resolved]

NARRATIVE: CASE EVENT DATE: 20200131
